FAERS Safety Report 16758978 (Version 1)
Quarter: 2019Q4

REPORT INFORMATION
  Report Type: Spontaneous
  Country: GB (occurrence: GB)
  Receive Date: 20190829
  Receipt Date: 20190829
  Transmission Date: 20200122
  Serious: No
  Sender: FDA-Public Use
  Company Number: None

PATIENT
  Age: 34 Year
  Sex: Female
  Weight: 57 kg

DRUGS (1)
  1. BETNOVATE [Suspect]
     Active Substance: BETAMETHASONE
     Indication: ECZEMA
     Route: 061

REACTIONS (8)
  - Adrenal disorder [None]
  - Skin exfoliation [None]
  - Suicidal ideation [None]
  - Anxiety [None]
  - Alopecia [None]
  - Depression [None]
  - Drug dependence [None]
  - Drug withdrawal syndrome [None]

NARRATIVE: CASE EVENT DATE: 20120808
